FAERS Safety Report 16301225 (Version 2)
Quarter: 2019Q2

REPORT INFORMATION
  Report Type: Spontaneous
  Country: US (occurrence: US)
  Receive Date: 20190510
  Receipt Date: 20190529
  Transmission Date: 20190711
  Serious: Yes (Death)
  Sender: FDA-Public Use
  Company Number: US-ACTELION-A-NJ2018-173935

PATIENT
  Sex: Female
  Weight: 36.74 kg

DRUGS (5)
  1. AMBRISENTAN [Concomitant]
     Active Substance: AMBRISENTAN
     Dosage: 5 MG
  2. ASA [Concomitant]
     Active Substance: ASPIRIN
  3. UPTRAVI [Suspect]
     Active Substance: SELEXIPAG
     Dosage: 1200 MCG, BID
     Route: 048
  4. UPTRAVI [Suspect]
     Active Substance: SELEXIPAG
     Indication: PULMONARY ARTERIAL HYPERTENSION
     Dosage: 1600 MCG, BID
     Route: 048
  5. ADCIRCA [Concomitant]
     Active Substance: TADALAFIL

REACTIONS (8)
  - Respiratory failure [Fatal]
  - Pulmonary hypertensive crisis [Fatal]
  - Diarrhoea [Unknown]
  - Decreased appetite [Unknown]
  - Pain in jaw [Unknown]
  - Abdominal pain upper [Unknown]
  - Headache [Unknown]
  - Respiratory distress [Fatal]
